FAERS Safety Report 17868829 (Version 2)
Quarter: 2025Q2

REPORT INFORMATION
  Report Type: Spontaneous
  Country: NL (occurrence: NL)
  Receive Date: 20200607
  Receipt Date: 20250503
  Transmission Date: 20250716
  Serious: Yes (Hospitalization)
  Sender: AUROBINDO
  Company Number: NL-002147023-NVSC2020NL135218

PATIENT
  Sex: Male

DRUGS (3)
  1. DIAZEPAM [Interacting]
     Active Substance: DIAZEPAM
     Indication: Product used for unknown indication
     Route: 065
  2. ACETAMINOPHEN [Suspect]
     Active Substance: ACETAMINOPHEN
     Indication: Product used for unknown indication
     Route: 065
  3. TRAMADOL [Interacting]
     Active Substance: TRAMADOL
     Indication: Product used for unknown indication
     Route: 065

REACTIONS (6)
  - Haemoptysis [Unknown]
  - Sputum discoloured [Unknown]
  - Painful respiration [Unknown]
  - Vomiting [Unknown]
  - Lung consolidation [Unknown]
  - Drug interaction [Unknown]
